FAERS Safety Report 25422450 (Version 1)
Quarter: 2025Q2

REPORT INFORMATION
  Report Type: Spontaneous
  Country: US (occurrence: US)
  Receive Date: 20250611
  Receipt Date: 20250611
  Transmission Date: 20250716
  Serious: No
  Sender: NOVARTIS
  Company Number: US-002147023-NVSC2025US090943

PATIENT
  Age: 38 Year
  Sex: Male

DRUGS (2)
  1. MEKINIST [Suspect]
     Active Substance: TRAMETINIB DIMETHYL SULFOXIDE
     Indication: Benign neoplasm of skin
     Dosage: 2 MG, QD
     Route: 048
     Dates: start: 202505
  2. TAFINLAR [Suspect]
     Active Substance: DABRAFENIB MESYLATE
     Indication: Benign neoplasm of skin
     Dosage: 150 MG, Q12H
     Route: 048
     Dates: start: 202505

REACTIONS (4)
  - Pyrexia [Unknown]
  - Muscle spasms [Unknown]
  - Rash [Recovered/Resolved]
  - Pruritus [Recovered/Resolved]

NARRATIVE: CASE EVENT DATE: 20250501
